FAERS Safety Report 19256349 (Version 3)
Quarter: 2021Q2

REPORT INFORMATION
  Report Type: Report from Study
  Country: DE (occurrence: DE)
  Receive Date: 20210513
  Receipt Date: 20210614
  Transmission Date: 20210717
  Serious: Yes (Death, Other)
  Sender: FDA-Public Use
  Company Number: DE-PFIZER INC-2021514629

PATIENT
  Age: 65 Year
  Sex: Male

DRUGS (4)
  1. CAMPTO [Suspect]
     Active Substance: IRINOTECAN
     Indication: OESOPHAGEAL SQUAMOUS CELL CARCINOMA
     Dosage: 80 MG/M2, CYCLIC (1 H INFUSION, WEEKLY DURING WEEKS 1?6 AND 8?12) 1?12
     Dates: start: 20080214
  2. FOLINIC ACID [Suspect]
     Active Substance: LEUCOVORIN
     Indication: OESOPHAGEAL SQUAMOUS CELL CARCINOMA
     Dosage: 500 MG/M2, CYCLIC (2 H INFUSION) DURING WEEKS 1?6 AND 8?12 1?12
     Dates: start: 20080214
  3. 5?FU [Suspect]
     Active Substance: FLUOROURACIL
     Indication: OESOPHAGEAL SQUAMOUS CELL CARCINOMA
     Dosage: 2 G/M2 (24 H?INFUSION) DURING WEEKS 1?6 AND 8?12 1?12
     Dates: start: 20080214
  4. CISPLATIN. [Suspect]
     Active Substance: CISPLATIN
     Indication: OESOPHAGEAL SQUAMOUS CELL CARCINOMA
     Dosage: 50 MG/M2, CYCLIC, (1 H INFUSION) ON WEEKS 1,3,5 AND 8,10,12 1?12
     Dates: start: 20080214

REACTIONS (4)
  - Leukopenia [Unknown]
  - Anaemia [Unknown]
  - Neutropenia [Unknown]
  - Thrombocytopenia [Unknown]
